FAERS Safety Report 17145924 (Version 1)
Quarter: 2019Q4

REPORT INFORMATION
  Report Type: Spontaneous
  Country: SE (occurrence: SE)
  Receive Date: 20191212
  Receipt Date: 20191212
  Transmission Date: 20200122
  Serious: Yes (Hospitalization)
  Sender: FDA-Public Use
  Company Number: SE-TEVA-2019-SE-1148903

PATIENT
  Age: 30 Year
  Sex: Female

DRUGS (4)
  1. THERALEN [Suspect]
     Active Substance: TRIMEPRAZINE
     Dosage: ^40 MG^
     Route: 048
     Dates: start: 20180505, end: 20180505
  2. LERGIGAN (PROMETHAZINE HYDROCHLORIDE) [Suspect]
     Active Substance: PROMETHAZINE HYDROCHLORIDE
     Dosage: 250 MILLIGRAM
     Route: 048
     Dates: start: 20180505, end: 20180505
  3. OXASCAND [Suspect]
     Active Substance: OXAZEPAM
     Dosage: ^50 MG^
     Route: 048
     Dates: start: 20180505, end: 20180505
  4. IMOVANE [Suspect]
     Active Substance: ZOPICLONE
     Dosage: 150 MILLIGRAM
     Route: 048
     Dates: start: 20180505, end: 20180505

REACTIONS (3)
  - Intentional self-injury [Unknown]
  - Intentional overdose [Unknown]
  - Fatigue [Unknown]

NARRATIVE: CASE EVENT DATE: 20180505
